FAERS Safety Report 5021210-9 (Version None)
Quarter: 2006Q2

REPORT INFORMATION
  Report Type: 
  Country: None (occurrence: None)
  Receive Date: 20060608
  Receipt Date: 20060529
  Transmission Date: 20061013
  Serious: Yes (Life-Threatening, Hospitalization)
  Sender: FDA-Public Use
  Company Number: DK-BOEHRINGER INGELHEIM PHARMACEUTICALS, INC.-2006-SW-00238DB

PATIENT
  Age: 39 Year
  Sex: Female

DRUGS (9)
  1. SPIRIVA [Suspect]
     Indication: ASTHMA
     Route: 055
     Dates: start: 20060413
  2. SPIRIVA [Suspect]
     Indication: CHRONIC OBSTRUCTIVE PULMONARY DISEASE
  3. DUOVENT [Concomitant]
  4. BRICANYL [Concomitant]
  5. CENTYL W KCL [Concomitant]
  6. SEREVENT [Concomitant]
     Route: 055
  7. SPIROCORT [Concomitant]
  8. AMLODIPINE [Concomitant]
  9. DIOVAN [Concomitant]

REACTIONS (2)
  - ASTHMA [None]
  - RESPIRATORY FAILURE [None]
